FAERS Safety Report 9980963 (Version 2)
Quarter: 2014Q1

REPORT INFORMATION
  Report Type: Spontaneous
  Country: AT (occurrence: AT)
  Receive Date: 20140307
  Receipt Date: 20140324
  Transmission Date: 20141002
  Serious: Yes (Life-Threatening, Hospitalization)
  Sender: FDA-Public Use
  Company Number: AT-JNJFOC-20140218474

PATIENT
  Age: 84 Year
  Sex: Male
  Weight: 68 kg

DRUGS (3)
  1. XARELTO [Suspect]
     Indication: CEREBROVASCULAR ACCIDENT PROPHYLAXIS
     Route: 048
     Dates: start: 20131217, end: 20140207
  2. XARELTO [Suspect]
     Indication: ATRIAL FIBRILLATION
     Route: 048
     Dates: start: 20131217, end: 20140207
  3. PANTOPRAZOLE [Concomitant]
     Route: 065

REACTIONS (4)
  - Haemoglobin decreased [Recovered/Resolved]
  - Anaemia [Recovered/Resolved]
  - General physical health deterioration [Recovered/Resolved]
  - Gastrointestinal haemorrhage [Recovered/Resolved]
